FAERS Safety Report 17656436 (Version 1)
Quarter: 2020Q2

REPORT INFORMATION
  Report Type: Spontaneous
  Country: US (occurrence: US)
  Receive Date: 20200410
  Receipt Date: 20200410
  Transmission Date: 20200713
  Serious: No
  Sender: FDA-Public Use
  Company Number: None

PATIENT
  Age: 66 Year
  Sex: Male
  Weight: 82.62 kg

DRUGS (11)
  1. MEKTOVI [Suspect]
     Active Substance: BINIMETINIB
     Indication: RECTAL CANCER
     Route: 048
     Dates: start: 20200311, end: 20200410
  2. DIPHENHYDRAMINE, 25MG, ORAL [Concomitant]
  3. BRAFTOVI [Suspect]
     Active Substance: ENCORAFENIB
     Indication: RECTAL CANCER
     Route: 048
     Dates: start: 20200311, end: 20200410
  4. ONDANSETRON 4MG, ORAL [Concomitant]
  5. HYDROMORPHONE, 2MG, ORAL [Concomitant]
  6. LISINOPRIL 5MG, ORAL [Concomitant]
  7. FAMOTIDINE 10MG, ORAL [Concomitant]
  8. ACETAMINOPHEN 325MG, ORAL [Concomitant]
  9. ALEVE 220MG, ORAL [Concomitant]
  10. LISINOPRIL 40MG, ORAL [Concomitant]
  11. CAPECITABINE 500MG, TWICE A DAY, ORAL [Concomitant]
     Dates: start: 20200114, end: 20200317

REACTIONS (1)
  - Retinopathy [None]

NARRATIVE: CASE EVENT DATE: 20200410
